FAERS Safety Report 6383469-5 (Version None)
Quarter: 2009Q3

REPORT INFORMATION
  Report Type: 
  Country: None (occurrence: None)
  Receive Date: 20090929
  Receipt Date: 20090929
  Transmission Date: 20100115
  Serious: Yes (Hospitalization)
  Sender: FDA-Public Use
  Company Number: None

PATIENT
  Sex: Female
  Weight: 69 kg

DRUGS (2)
  1. CYCLOPHOSPHAMIDE [Suspect]
     Dosage: 3310 MG
  2. DOXORUBICIN HCL [Suspect]
     Dosage: 332 MG

REACTIONS (4)
  - ABSCESS INTESTINAL [None]
  - CHILLS [None]
  - DIVERTICULITIS [None]
  - PYREXIA [None]
